FAERS Safety Report 15271419 (Version 2)
Quarter: 2018Q3

REPORT INFORMATION
  Report Type: Spontaneous
  Country: BR (occurrence: BR)
  Receive Date: 20180813
  Receipt Date: 20180824
  Transmission Date: 20181010
  Serious: Yes (Hospitalization, Other)
  Sender: FDA-Public Use
  Company Number: BR-PFIZER INC-2016507450

PATIENT
  Sex: Female

DRUGS (10)
  1. DEPURA [Concomitant]
     Active Substance: CHOLECALCIFEROL
     Dosage: 12 DROPS, 1X/WEEK
  2. RECONTER [Concomitant]
     Active Substance: ESCITALOPRAM OXALATE
     Dosage: 15 MG, UNK
  3. RISEDROSS [Concomitant]
     Active Substance: RISEDRONATE SODIUM
     Dosage: 35 MG, 2X/WEEK
  4. CITALOPRAM [Concomitant]
     Active Substance: CITALOPRAM HYDROBROMIDE
     Dosage: UNK
     Dates: end: 201602
  5. INTERFERON [Concomitant]
     Active Substance: INTERFERON
     Dosage: UNK
     Dates: start: 2008, end: 201201
  6. CALCIUM CARBONATE. [Concomitant]
     Active Substance: CALCIUM CARBONATE
     Indication: OSTEOPOROSIS
     Dosage: 500 MG, 2X/DAY
  7. CRESTOR [Concomitant]
     Active Substance: ROSUVASTATIN CALCIUM
     Indication: BLOOD CHOLESTEROL ABNORMAL
     Dosage: UNK
  8. FRONTAL XR [Suspect]
     Active Substance: ALPRAZOLAM
     Indication: DEPRESSION
     Dosage: 0.5 MG, 1X/DAY
     Dates: start: 2004, end: 2018
  9. FRONTAL XR [Suspect]
     Active Substance: ALPRAZOLAM
     Indication: ANXIETY
     Dosage: UNK
     Dates: start: 2018
  10. RIBAVIRIN. [Concomitant]
     Active Substance: RIBAVIRIN
     Dosage: UNK
     Dates: start: 2008, end: 201201

REACTIONS (12)
  - Pain [Not Recovered/Not Resolved]
  - Drug dependence [Not Recovered/Not Resolved]
  - Arthritis [Not Recovered/Not Resolved]
  - Bradycardia [Not Recovered/Not Resolved]
  - Lung infection [Recovered/Resolved]
  - Hypertension [Not Recovered/Not Resolved]
  - Onychomycosis [Not Recovered/Not Resolved]
  - Emphysema [Not Recovered/Not Resolved]
  - Cerebrovascular accident [Recovered/Resolved]
  - Psoriatic arthropathy [Not Recovered/Not Resolved]
  - Influenza [Recovered/Resolved]
  - Herpes virus infection [Not Recovered/Not Resolved]

NARRATIVE: CASE EVENT DATE: 2007
